FAERS Safety Report 20347357 (Version 2)
Quarter: 2022Q1

REPORT INFORMATION
  Report Type: Spontaneous
  Country: US (occurrence: US)
  Receive Date: 20220118
  Receipt Date: 20220118
  Transmission Date: 20220423
  Serious: Yes (Other)
  Sender: FDA-Public Use
  Company Number: US-NOVARTISPH-NVSC2022US010438

PATIENT
  Age: 47 Year
  Sex: Male

DRUGS (2)
  1. RANITIDINE [Suspect]
     Active Substance: RANITIDINE
     Indication: Dyspepsia
     Dosage: 150 MG,,OTHER,TWICE A DAY AT FIRST THEN IT WAS LOWERED TO ONCE A DAY
     Route: 048
     Dates: start: 199001, end: 201001
  2. RANITIDINE [Suspect]
     Active Substance: RANITIDINE
     Indication: Dyspepsia
     Dosage: 150 MG,,OTHER,TWICE A DAY AT FIRST THEN IT WAS LOWERED TO ONCE A DAY
     Route: 048
     Dates: start: 199001, end: 201001

REACTIONS (1)
  - Prostate cancer [Recovered/Resolved]

NARRATIVE: CASE EVENT DATE: 20130101
